FAERS Safety Report 20918009 (Version 3)
Quarter: 2022Q4

REPORT INFORMATION
  Report Type: Report from Study
  Country: JP (occurrence: JP)
  Receive Date: 20220606
  Receipt Date: 20221215
  Transmission Date: 20230113
  Serious: Yes (Death, Hospitalization, Other)
  Sender: FDA-Public Use
  Company Number: JP-ALNYLAM PHARMACEUTICALS, INC.-ALN-2022-001950

PATIENT

DRUGS (28)
  1. ONPATTRO [Suspect]
     Active Substance: PATISIRAN SODIUM
     Indication: Hereditary neuropathic amyloidosis
     Dosage: 13.2 MILLIGRAM
     Route: 041
     Dates: start: 20191030, end: 20191030
  2. ONPATTRO [Suspect]
     Active Substance: PATISIRAN SODIUM
     Dosage: 12.6 MILLIGRAM
     Route: 041
     Dates: start: 20191120, end: 20191120
  3. ONPATTRO [Suspect]
     Active Substance: PATISIRAN SODIUM
     Dosage: 13.5 MILLIGRAM
     Route: 041
     Dates: start: 20191211, end: 20191211
  4. ONPATTRO [Suspect]
     Active Substance: PATISIRAN SODIUM
     Dosage: 12.9 MILLIGRAM
     Route: 041
     Dates: start: 20200108, end: 20200129
  5. ONPATTRO [Suspect]
     Active Substance: PATISIRAN SODIUM
     Dosage: 13.2 MILLIGRAM
     Route: 041
     Dates: start: 20200219, end: 20200219
  6. ONPATTRO [Suspect]
     Active Substance: PATISIRAN SODIUM
     Dosage: 13.8 MILLIGRAM
     Route: 041
     Dates: start: 20200311, end: 20200311
  7. ONPATTRO [Suspect]
     Active Substance: PATISIRAN SODIUM
     Dosage: 13.2 MILLIGRAM
     Route: 041
     Dates: start: 20200408, end: 20200624
  8. ONPATTRO [Suspect]
     Active Substance: PATISIRAN SODIUM
     Dosage: 12.6 MILLIGRAM
     Route: 041
     Dates: start: 20200715, end: 20200715
  9. ONPATTRO [Suspect]
     Active Substance: PATISIRAN SODIUM
     Dosage: 12.9 MILLIGRAM
     Route: 041
     Dates: start: 20200819, end: 20200819
  10. ONPATTRO [Suspect]
     Active Substance: PATISIRAN SODIUM
     Dosage: 13.2 MILLIGRAM
     Route: 041
     Dates: start: 20200909, end: 20200909
  11. ONPATTRO [Suspect]
     Active Substance: PATISIRAN SODIUM
     Dosage: 12.9 MILLIGRAM
     Route: 041
     Dates: start: 20200930, end: 20200930
  12. ONPATTRO [Suspect]
     Active Substance: PATISIRAN SODIUM
     Dosage: 13.2 MILLIGRAM
     Route: 041
     Dates: start: 20201021, end: 20201021
  13. ONPATTRO [Suspect]
     Active Substance: PATISIRAN SODIUM
     Dosage: 12.3 MILLIGRAM
     Route: 041
     Dates: start: 20201111, end: 20201111
  14. ONPATTRO [Suspect]
     Active Substance: PATISIRAN SODIUM
     Dosage: 12.6 MILLIGRAM
     Route: 041
     Dates: start: 20201202, end: 20210119
  15. ONPATTRO [Suspect]
     Active Substance: PATISIRAN SODIUM
     Dosage: 12.3 MILLIGRAM
     Route: 041
     Dates: start: 20210209, end: 20210302
  16. ONPATTRO [Suspect]
     Active Substance: PATISIRAN SODIUM
     Dosage: 12.6 MILLIGRAM
     Route: 041
     Dates: start: 20210323, end: 20210323
  17. ONPATTRO [Suspect]
     Active Substance: PATISIRAN SODIUM
     Dosage: 12.3 MILLIGRAM
     Route: 041
     Dates: start: 20210413, end: 20210413
  18. ONPATTRO [Suspect]
     Active Substance: PATISIRAN SODIUM
     Dosage: 12.3 MILLIGRAM, Q3W
     Route: 041
     Dates: start: 20220510, end: 20220531
  19. DECADRON [Concomitant]
     Active Substance: DEXAMETHASONE
     Indication: Prophylaxis
     Dosage: 9.9 MILLIGRAM, SINGLE
     Route: 041
     Dates: start: 20191030, end: 20220531
  20. ACETAMINOPHEN [Concomitant]
     Active Substance: ACETAMINOPHEN
     Indication: Prophylaxis
     Dosage: 600 MILLIGRAM, SINGLE
     Route: 048
     Dates: start: 20191030, end: 20220531
  21. POLARAMINE [Concomitant]
     Active Substance: DEXCHLORPHENIRAMINE MALEATE
     Indication: Prophylaxis
     Dosage: 5 MILLIGRAM, SINGLE
     Route: 041
     Dates: start: 20191030, end: 20220531
  22. FAMOTIDINE [Concomitant]
     Active Substance: FAMOTIDINE
     Indication: Prophylaxis
     Dosage: 20 MILLIGRAM, SINGLE
     Route: 041
     Dates: start: 20191030, end: 20220531
  23. RAMOSETRON HYDROCHLORIDE [Concomitant]
     Active Substance: RAMOSETRON HYDROCHLORIDE
     Indication: Diarrhoea
     Dosage: 10 MICROGRAM, QD
     Route: 048
     Dates: start: 20180510
  24. LOPERAMIDE [Concomitant]
     Active Substance: LOPERAMIDE
     Indication: Diarrhoea
     Dosage: 3 MILLIGRAM, QD
     Route: 048
     Dates: start: 20180604
  25. TRIMEBUTINE MALEATE [Concomitant]
     Active Substance: TRIMEBUTINE MALEATE
     Indication: Irritable bowel syndrome
     Dosage: 300 MILLIGRAM, QD
     Route: 048
     Dates: start: 20180604
  26. HERBALS [Concomitant]
     Active Substance: HERBALS
     Indication: Gastritis
     Dosage: 7.5 GRAM, QD
     Route: 048
     Dates: start: 20190108
  27. METOCLOPRAMIDE [Concomitant]
     Active Substance: METOCLOPRAMIDE
     Indication: Gastritis
     Dosage: 15 MILLIGRAM, QD
     Route: 048
     Dates: start: 20190423
  28. MIYA-BM [Concomitant]
     Active Substance: CLOSTRIDIUM BUTYRICUM SPORES STRAIN M-55
     Indication: Gastrointestinal motility disorder
     Dosage: 6 DOSAGE FORM, QD
     Route: 048
     Dates: start: 20190502

REACTIONS (4)
  - Cardiac failure congestive [Fatal]
  - Septic shock [Recovered/Resolved]
  - Disseminated intravascular coagulation [Recovered/Resolved]
  - Ureterolithiasis [Recovered/Resolved]
